FAERS Safety Report 5054117-1 (Version None)
Quarter: 2006Q3

REPORT INFORMATION
  Report Type: 
  Country: None (occurrence: None)
  Receive Date: 20060718
  Receipt Date: 20060707
  Transmission Date: 20061208
  Serious: Yes (Hospitalization, Other)
  Sender: FDA-Public Use
  Company Number: AU-NOVOPROD-254735

PATIENT
  Age: 14 Year
  Sex: Male
  Weight: 54 kg

DRUGS (3)
  1. NORDITROPIN SIMPLEXX [Suspect]
     Indication: GROWTH HORMONE DEFICIENCY
     Dosage: 1.92 MG, QD
     Route: 058
     Dates: start: 19970403
  2. PULMICORT [Concomitant]
     Indication: ASTHMA
     Route: 055
     Dates: start: 20040630
  3. RITALIN-SR [Concomitant]
     Indication: ATTENTION DEFICIT/HYPERACTIVITY DISORDER
     Dosage: UNK, UNK
     Route: 048
     Dates: start: 20040630

REACTIONS (2)
  - ASTHMA [None]
  - VIRAL UPPER RESPIRATORY TRACT INFECTION [None]
